FAERS Safety Report 10794826 (Version 2)
Quarter: 2015Q1

REPORT INFORMATION
  Report Type: Spontaneous
  Country: US (occurrence: US)
  Receive Date: 20150213
  Receipt Date: 20150306
  Transmission Date: 20150721
  Serious: No
  Sender: FDA-Public Use
  Company Number: US-GLAXOSMITHKLINE-US2014041376

PATIENT
  Age: 68 Year
  Sex: Female

DRUGS (1)
  1. FLOVENT DISKUS [Suspect]
     Active Substance: FLUTICASONE PROPIONATE
     Indication: BRONCHOSPASM
     Dosage: 1 PUFF(S), BID
     Route: 055
     Dates: start: 20141223

REACTIONS (5)
  - Chest discomfort [Unknown]
  - Cough [Unknown]
  - Product use issue [Unknown]
  - Device failure [Unknown]
  - Product quality issue [Unknown]

NARRATIVE: CASE EVENT DATE: 20141223
